FAERS Safety Report 8129186-2 (Version None)
Quarter: 2012Q1

REPORT INFORMATION
  Report Type: 
  Country: None (occurrence: None)
  Receive Date: 20120210
  Receipt Date: 20111129
  Transmission Date: 20120608
  Serious: No
  Sender: FDA-Public Use
  Company Number: US-BRISTOL-MYERS SQUIBB COMPANY-16225138

PATIENT
  Age: 60 Year
  Sex: Female

DRUGS (3)
  1. CELEBREX [Concomitant]
  2. PREDNISONE [Concomitant]
  3. ORENCIA [Suspect]
     Indication: RHEUMATOID ARTHRITIS
     Dosage: 3VIALS 2ND INF
     Dates: start: 20111107

REACTIONS (1)
  - MIGRAINE [None]
